FAERS Safety Report 20690544 (Version 1)
Quarter: 2022Q2

REPORT INFORMATION
  Report Type: Spontaneous
  Country: US (occurrence: None)
  Receive Date: 20220406
  Receipt Date: 20220406
  Transmission Date: 20220721
  Serious: Yes (Hospitalization)
  Sender: FDA-Public Use
  Company Number: None

PATIENT
  Age: 37 Year
  Sex: Female
  Weight: 88.9 kg

DRUGS (6)
  1. STELARA [Suspect]
     Active Substance: USTEKINUMAB
  2. AZATHIOPRINE [Suspect]
     Active Substance: AZATHIOPRINE
  3. CALCIUM [Concomitant]
     Active Substance: CALCIUM
  4. VITAMIN D3 [Concomitant]
     Active Substance: CHOLECALCIFEROL
  5. Cyanocobalamin (VITAMIN B12) [Concomitant]
  6. FOLIC ACID [Concomitant]
     Active Substance: FOLIC ACID

REACTIONS (5)
  - Crohn^s disease [None]
  - Cellulitis [None]
  - Post procedural swelling [None]
  - Feeling hot [None]
  - Therapy interrupted [None]
